FAERS Safety Report 7266893-8 (Version None)
Quarter: 2011Q1

REPORT INFORMATION
  Report Type: 
  Country: None (occurrence: None)
  Receive Date: 20110201
  Receipt Date: 20110126
  Transmission Date: 20110831
  Serious: Yes (Other)
  Sender: FDA-Public Use
  Company Number: CA-ELI_LILLY_AND_COMPANY-CA201101006442

PATIENT
  Sex: Female

DRUGS (13)
  1. ZYPREXA [Suspect]
     Dosage: 2.5 MG, EACH EVENING
     Route: 048
     Dates: start: 20070725
  2. EPIVAL [Concomitant]
     Dosage: 250 MG, EACH MORNING
  3. SYNTHROID [Concomitant]
  4. LIPITOR [Concomitant]
  5. ZYPREXA [Suspect]
     Dosage: 5 MG, UNK
     Dates: end: 20070725
  6. EPIVAL [Concomitant]
     Dosage: 500 MG, EACH EVENING
  7. STARNOC [Concomitant]
     Dosage: 10 MG, EACH EVENING
     Route: 048
  8. ZOCOR [Concomitant]
  9. LITHIUM [Concomitant]
     Indication: BIPOLAR I DISORDER
  10. HALDOL [Concomitant]
     Dates: end: 20020101
  11. CRESTOR [Concomitant]
  12. IMOVANE [Concomitant]
  13. ATIVAN [Concomitant]

REACTIONS (12)
  - TYPE 2 DIABETES MELLITUS [None]
  - METABOLIC SYNDROME [None]
  - HYPERTRIGLYCERIDAEMIA [None]
  - WEIGHT INCREASED [None]
  - HYPOTHYROIDISM [None]
  - GLUCOSE TOLERANCE IMPAIRED [None]
  - TREMOR [None]
  - HYPERCHOLESTEROLAEMIA [None]
  - AMPUTATION [None]
  - DRUG INTERACTION [None]
  - HYPERTENSION [None]
  - OBESITY [None]
